FAERS Safety Report 9736062 (Version 1)
Quarter: 2013Q4

REPORT INFORMATION
  Report Type: Spontaneous
  Country: US (occurrence: US)
  Receive Date: 20131206
  Receipt Date: 20131206
  Transmission Date: 20140711
  Serious: Yes (Death)
  Sender: FDA-Public Use
  Company Number: US-CELGENEUS-163-21880-13121061

PATIENT
  Sex: 0

DRUGS (4)
  1. REVLIMID [Suspect]
     Indication: CENTRAL NERVOUS SYSTEM NEOPLASM
     Dosage: 70 MILLIGRAM/SQ. METER
     Route: 048
  2. DASATINIB [Suspect]
     Indication: CENTRAL NERVOUS SYSTEM NEOPLASM
     Route: 065
  3. DASATINIB [Suspect]
     Route: 065
  4. TEMOZOLOMIDE [Suspect]
     Indication: CENTRAL NERVOUS SYSTEM NEOPLASM
     Dosage: 75 MILLIGRAM/SQ. METER
     Route: 065

REACTIONS (1)
  - Central nervous system neoplasm [Fatal]
